FAERS Safety Report 8809193 (Version 1)
Quarter: 2012Q4

REPORT INFORMATION
  Report Type: Report from Study
  Country: GB (occurrence: GB)
  Receive Date: 20120926
  Receipt Date: 20120926
  Transmission Date: 20130627
  Serious: Yes (Hospitalization, Other)
  Sender: FDA-Public Use
  Company Number: GB-JNJFOC-20120909930

PATIENT
  Age: 36 Year
  Sex: Female
  Weight: 126 kg

DRUGS (6)
  1. USTEKINUMAB [Suspect]
     Indication: PSORIASIS
     Route: 058
     Dates: start: 20110714
  2. ASPIRIN [Concomitant]
     Route: 065
     Dates: start: 20110603
  3. SIMVASTATIN [Concomitant]
     Route: 065
     Dates: start: 20110603
  4. METFORMIN [Concomitant]
     Route: 065
     Dates: start: 20090126
  5. OXYTETRACYCLINE [Concomitant]
     Route: 065
     Dates: start: 20120131
  6. HUMALOG [Concomitant]
     Route: 065

REACTIONS (1)
  - Subcutaneous abscess [Recovered/Resolved]
